FAERS Safety Report 5284312-8 (Version None)
Quarter: 2007Q1

REPORT INFORMATION
  Report Type: 
  Country: None (occurrence: None)
  Receive Date: 20070327
  Receipt Date: 20070316
  Transmission Date: 20070707
  Serious: Yes (Other)
  Sender: FDA-Public Use
  Company Number: 100#03#2007-00923

PATIENT
  Sex: Female

DRUGS (3)
  1. CARBOPLATIN [Suspect]
     Indication: NON-SMALL CELL LUNG CANCER
  2. GEMCITABINE [Suspect]
     Indication: NON-SMALL CELL LUNG CANCER
  3. THALIDOMIDE [Suspect]
     Indication: NON-SMALL CELL LUNG CANCER

REACTIONS (1)
  - PULMONARY EMBOLISM [None]
